FAERS Safety Report 6575475-2 (Version None)
Quarter: 2010Q1

REPORT INFORMATION
  Report Type: 
  Country: None (occurrence: None)
  Receive Date: 20100209
  Receipt Date: 20100128
  Transmission Date: 20100710
  Serious: Yes (Hospitalization, Other)
  Sender: FDA-Public Use
  Company Number: FR-PFIZER INC-2010013738

PATIENT
  Sex: Female

DRUGS (1)
  1. INSPRA [Suspect]

REACTIONS (2)
  - DEHYDRATION [None]
  - GASTROENTERITIS [None]
